FAERS Safety Report 4936688-6 (Version None)
Quarter: 2006Q1

REPORT INFORMATION
  Report Type: 
  Country: None (occurrence: None)
  Receive Date: 20060127
  Receipt Date: 20051112
  Transmission Date: 20060701
  Serious: Yes (Other)
  Sender: FDA-Public Use
  Company Number: 2005156124

PATIENT
  Age: 80 Year
  Sex: Female
  Weight: 65.7716 kg

DRUGS (5)
  1. LYRICA [Suspect]
     Indication: HYPOAESTHESIA
     Dosage: 100  MG (50 MG, 1 IN 1 D), ORAL
     Route: 048
     Dates: start: 20051001
  2. LYRICA [Suspect]
     Indication: PARAESTHESIA
     Dosage: 100  MG (50 MG, 1 IN 1 D), ORAL
     Route: 048
     Dates: start: 20051001
  3. NORVASC [Concomitant]
  4. LIPITOR [Concomitant]
  5. VALSARTAN [Concomitant]

REACTIONS (1)
  - ARTHRALGIA [None]
